FAERS Safety Report 5357374-7 (Version None)
Quarter: 2007Q2

REPORT INFORMATION
  Report Type: 
  Country: None (occurrence: None)
  Receive Date: 20070614
  Receipt Date: 20070607
  Transmission Date: 20071010
  Serious: Yes (Other)
  Sender: FDA-Public Use
  Company Number: B0474165A

PATIENT
  Age: 59 Year
  Sex: Male

DRUGS (3)
  1. PAXIL [Suspect]
     Indication: DEPRESSION
     Dosage: 20MG PER DAY
     Route: 048
     Dates: start: 20070528
  2. HALCION [Concomitant]
     Route: 048
  3. HALCION [Concomitant]
     Route: 048
     Dates: start: 20070601, end: 20070601

REACTIONS (1)
  - SUICIDE ATTEMPT [None]
